FAERS Safety Report 5402786-6 (Version None)
Quarter: 2007Q3

REPORT INFORMATION
  Report Type: 
  Country: None (occurrence: None)
  Receive Date: 20070730
  Receipt Date: 20070730
  Transmission Date: 20080115
  Serious: Yes (Hospitalization)
  Sender: FDA-Public Use
  Company Number: None

PATIENT
  Age: 37 Year
  Sex: Female
  Weight: 58.9676 kg

DRUGS (1)
  1. COLISTIN SULFATE [Suspect]

REACTIONS (10)
  - CONDITION AGGRAVATED [None]
  - CYSTIC FIBROSIS [None]
  - DRUG TOXICITY [None]
  - DYSPNOEA [None]
  - LOBAR PNEUMONIA [None]
  - LUNG INFILTRATION [None]
  - OXYGEN SATURATION DECREASED [None]
  - PYREXIA [None]
  - TACHYCARDIA [None]
  - TACHYPNOEA [None]
